FAERS Safety Report 21903406 (Version 1)
Quarter: 2023Q1

REPORT INFORMATION
  Report Type: Spontaneous
  Country: US (occurrence: US)
  Receive Date: 20230124
  Receipt Date: 20230124
  Transmission Date: 20230417
  Serious: No
  Sender: FDA-Public Use
  Company Number: US-ABBVIE-4239066

PATIENT
  Sex: Female
  Weight: 73 kg

DRUGS (1)
  1. SYNTHROID [Suspect]
     Active Substance: LEVOTHYROXINE SODIUM
     Indication: Basedow^s disease
     Dosage: 100MG; 1 A DAY EXCEPT ON SUNDAY TAKING 1/2
     Route: 048

REACTIONS (1)
  - Drug ineffective [Unknown]
